FAERS Safety Report 17969729 (Version 6)
Quarter: 2021Q1

REPORT INFORMATION
  Report Type: Report from Study
  Country: IN (occurrence: IN)
  Receive Date: 20200701
  Receipt Date: 20210218
  Transmission Date: 20210419
  Serious: Yes (Hospitalization)
  Sender: FDA-Public Use
  Company Number: NVSC2019IN018508

PATIENT
  Age: 67 Year
  Sex: Male
  Weight: 43.4 kg

DRUGS (44)
  1. CANAKINUMAB. [Suspect]
     Active Substance: CANAKINUMAB
     Indication: NON-SMALL CELL LUNG CANCER
     Dosage: UNK
     Route: 058
     Dates: start: 20190904, end: 20191017
  2. A TO Z [Concomitant]
     Active Substance: MINERALS\VITAMINS
     Indication: GENERAL PHYSICAL CONDITION
     Dosage: UNK
     Route: 065
     Dates: start: 20190922
  3. ZOFER 8 MG [Concomitant]
     Route: 065
     Dates: start: 20190930, end: 20191010
  4. ZOFER 8 MG [Concomitant]
     Route: 065
     Dates: start: 20191022, end: 20191102
  5. ZOFER 8 MG [Concomitant]
     Route: 065
     Dates: start: 20191104, end: 20191105
  6. ZOFER 8 MG [Concomitant]
     Route: 065
     Dates: start: 20190816
  7. COMPARATOR CARBOPLATIN [Suspect]
     Active Substance: CARBOPLATIN
     Dosage: 450 MG, Q3W
     Route: 042
     Dates: start: 20191112
  8. TIOVA [Concomitant]
     Indication: INHALATION THERAPY
     Dosage: UNK
     Route: 065
     Dates: start: 20190816
  9. ZOFER 8 MG [Concomitant]
     Route: 065
     Dates: start: 20191022, end: 20191104
  10. ZOFER 8 MG [Concomitant]
     Route: 065
     Dates: start: 20191022
  11. ZOFER 8 MG [Concomitant]
     Route: 065
     Dates: start: 20190911
  12. ZOFER 8 MG [Concomitant]
     Route: 065
     Dates: start: 20191010
  13. ZOFER 8 MG [Concomitant]
     Route: 065
     Dates: start: 20190716
  14. ALLEGRA [Concomitant]
     Active Substance: FEXOFENADINE HYDROCHLORIDE
     Indication: RASH
     Dosage: UNK
     Route: 065
     Dates: start: 20190911
  15. PERINORM [Concomitant]
     Indication: PROPHYLAXIS
     Dosage: UNK
     Route: 065
     Dates: start: 20190716
  16. AZITHROMYCIN ANHYDROUS. [Concomitant]
     Active Substance: AZITHROMYCIN ANHYDROUS
     Indication: PROPHYLAXIS
     Dosage: UNK
     Route: 065
     Dates: start: 20190816
  17. ZOFER 8 MG [Concomitant]
     Route: 065
     Dates: start: 20191022, end: 20191105
  18. ZOFER 8 MG [Concomitant]
     Route: 065
     Dates: start: 20191022, end: 20191102
  19. ZOFER 8 MG [Concomitant]
     Route: 065
     Dates: start: 20191030, end: 20191102
  20. ZOFER 8 MG [Concomitant]
     Route: 065
     Dates: start: 20191030, end: 20191104
  21. ZOFER 8 MG [Concomitant]
     Route: 065
     Dates: start: 20190816
  22. TRAMADOL. [Concomitant]
     Active Substance: TRAMADOL
     Indication: PAIN PROPHYLAXIS
     Dosage: UNK
     Route: 065
     Dates: start: 20191030, end: 20191030
  23. COMPARATOR PEMETREXED [Suspect]
     Active Substance: PEMETREXED DISODIUM
     Indication: NON-SMALL CELL LUNG CANCER
     Dosage: 675 UG, Q3W
     Route: 042
     Dates: start: 20190904
  24. ZOFER [Concomitant]
     Active Substance: ONDANSETRON HYDROCHLORIDE
     Indication: PROPHYLAXIS OF NAUSEA AND VOMITING
     Dosage: UNK
     Route: 065
     Dates: start: 20190922
  25. ZOFER 8 MG [Concomitant]
     Route: 065
     Dates: start: 20191104, end: 20191105
  26. ZOFER 8 MG [Concomitant]
     Route: 065
     Dates: start: 20191022
  27. LACTO CALAMINE [Concomitant]
     Indication: RASH
     Dosage: UNK
     Route: 065
     Dates: start: 20190911
  28. PYREGESIC [Concomitant]
     Indication: CHEST PAIN
     Dosage: UNK
     Route: 065
     Dates: start: 20190930
  29. ZOFER 8 MG [Concomitant]
     Indication: PROPHYLAXIS
     Dosage: UNK
     Route: 065
     Dates: start: 20191030, end: 20191030
  30. ZOFER 8 MG [Concomitant]
     Route: 065
     Dates: start: 20190911
  31. ZOFER 8 MG [Concomitant]
     Route: 065
     Dates: start: 20191022
  32. CANAKINUMAB. [Suspect]
     Active Substance: CANAKINUMAB
     Dosage: UNK
     Route: 058
     Dates: start: 20191112
  33. ULTRACET [Concomitant]
     Active Substance: ACETAMINOPHEN\TRAMADOL HYDROCHLORIDE
     Indication: NON-SMALL CELL LUNG CANCER
     Dosage: UNK
     Route: 065
     Dates: start: 20190716
  34. BUDECORT [Concomitant]
     Active Substance: BUDESONIDE
     Indication: INHALATION THERAPY
     Dosage: UNK
     Route: 065
     Dates: start: 20190816
  35. COMPARATOR PEMBROLIZUMAB [Suspect]
     Active Substance: PEMBROLIZUMAB
     Indication: NON-SMALL CELL LUNG CANCER
     Dosage: 200 UG, Q3W
     Route: 042
     Dates: start: 20190904, end: 20191017
  36. COMPARATOR CARBOPLATIN [Suspect]
     Active Substance: CARBOPLATIN
     Indication: NON-SMALL CELL LUNG CANCER
     Dosage: 450 UG, Q3W
     Route: 042
     Dates: start: 20190904, end: 20190917
  37. MONTEK LC [Concomitant]
     Indication: PROPHYLAXIS
     Dosage: UNK
     Route: 065
     Dates: start: 20190816
  38. ZOFER 8 MG [Concomitant]
     Route: 065
     Dates: start: 20191030, end: 20191104
  39. COMPARATOR PEMBROLIZUMAB [Suspect]
     Active Substance: PEMBROLIZUMAB
     Dosage: 200 MG, Q3W
     Route: 042
     Dates: start: 20191112
  40. ZOFER 8 MG [Concomitant]
     Route: 065
     Dates: start: 20191030, end: 20191104
  41. ZOFER 8 MG [Concomitant]
     Route: 065
     Dates: start: 20190930
  42. ZOFER 8 MG [Concomitant]
     Route: 065
     Dates: start: 20191010
  43. ZOFER 8 MG [Concomitant]
     Route: 065
     Dates: start: 20190922
  44. PAUSE [Concomitant]
     Indication: HAEMOPTYSIS
     Dosage: UNK
     Route: 065
     Dates: start: 20190930, end: 20191010

REACTIONS (2)
  - Febrile neutropenia [Recovered/Resolved]
  - Cholecystitis [Not Recovered/Not Resolved]

NARRATIVE: CASE EVENT DATE: 20191010
